FAERS Safety Report 14330121 (Version 2)
Quarter: 2018Q1

REPORT INFORMATION
  Report Type: Spontaneous
  Country: FR (occurrence: FR)
  Receive Date: 20171227
  Receipt Date: 20180105
  Transmission Date: 20180509
  Serious: Yes (Hospitalization, Other)
  Sender: FDA-Public Use
  Company Number: FR-SA-2017SA087625

PATIENT
  Age: 74 Year
  Sex: Female
  Weight: 86 kg

DRUGS (12)
  1. DOLIPRANE [Suspect]
     Active Substance: ACETAMINOPHEN
     Route: 048
  2. COUMADINE [Suspect]
     Active Substance: WARFARIN SODIUM
     Route: 048
  3. ZOLPIDEM [Suspect]
     Active Substance: ZOLPIDEM\ZOLPIDEM TARTRATE
     Route: 048
  4. ABILIFY [Suspect]
     Active Substance: ARIPIPRAZOLE
     Route: 048
  5. OROKEN [Concomitant]
     Active Substance: CEFIXIME
     Indication: CYSTITIS
     Route: 065
     Dates: start: 20170405, end: 20170411
  6. ZOLPIDEM [Suspect]
     Active Substance: ZOLPIDEM\ZOLPIDEM TARTRATE
     Route: 048
  7. FLUOXETINE HYDROCHLORIDE. [Suspect]
     Active Substance: FLUOXETINE HYDROCHLORIDE
     Route: 048
  8. ATORVASTATIN [Suspect]
     Active Substance: ATORVASTATIN
     Route: 048
  9. SERETIDE [Suspect]
     Active Substance: FLUTICASONE PROPIONATE\SALMETEROL XINAFOATE
     Route: 065
  10. LERCANIDIPINE HYDROCHLORIDE [Suspect]
     Active Substance: LERCANIDIPINE HYDROCHLORIDE
     Route: 048
  11. UVEDOSE [Suspect]
     Active Substance: CHOLECALCIFEROL
     Route: 048
  12. WARFARIN [Suspect]
     Active Substance: WARFARIN
     Route: 048

REACTIONS (6)
  - Cholestasis [Unknown]
  - Pruritus [Recovering/Resolving]
  - Urticaria [Recovering/Resolving]
  - Cell death [Unknown]
  - Intentional product misuse [Unknown]
  - Urticaria [Unknown]

NARRATIVE: CASE EVENT DATE: 201703
